FAERS Safety Report 4604842-9 (Version None)
Quarter: 2005Q1

REPORT INFORMATION
  Report Type: 
  Country: None (occurrence: None)
  Receive Date: 20050311
  Receipt Date: 20050301
  Transmission Date: 20050727
  Serious: Yes (Hospitalization)
  Sender: FDA-Public Use
  Company Number: CA-JNJFOC-20050200598

PATIENT
  Sex: Male

DRUGS (8)
  1. REMICADE [Suspect]
     Route: 042
  2. REMICADE [Suspect]
     Route: 042
  3. REMICADE [Suspect]
     Route: 042
  4. REMICADE [Suspect]
     Indication: RHEUMATOID ARTHRITIS
     Dosage: TOTAL OF FIVE INFUSIONS
     Route: 042
  5. METHOTREXATE [Concomitant]
  6. OXAZEPAM [Concomitant]
  7. LOSEC [Concomitant]
  8. ACETAMINOPHEN [Concomitant]

REACTIONS (10)
  - APHONIA [None]
  - ARTHRITIS [None]
  - CEREBRAL DISORDER [None]
  - INFUSION RELATED REACTION [None]
  - NECK PAIN [None]
  - NYSTAGMUS [None]
  - RASH [None]
  - SENSORY DISTURBANCE [None]
  - STOMATITIS [None]
  - VOMITING [None]
